FAERS Safety Report 8434100-6 (Version None)
Quarter: 2012Q2

REPORT INFORMATION
  Report Type: 
  Country: None (occurrence: None)
  Receive Date: 20120323
  Receipt Date: 20111007
  Transmission Date: 20120825
  Serious: Yes (Hospitalization, Disabling, Other)
  Sender: FDA-Public Use
  Company Number: 163-21880-11083568

PATIENT
  Age: 63 Year
  Sex: Female

DRUGS (8)
  1. LOTREL [Concomitant]
  2. BYSTOLIC [Concomitant]
  3. FOLIC ACID [Concomitant]
  4. REVLIMID [Suspect]
     Indication: MULTIPLE MYELOMA
     Dosage: 25 MG, 1 IN 1 D, PO
     Route: 048
     Dates: start: 20110803
  5. DEXAMETHASONE [Concomitant]
  6. METFORMIN HCL [Concomitant]
  7. HYDROCHLORIC ACID [Concomitant]
  8. DECADRON [Suspect]
     Indication: MULTIPLE MYELOMA
     Dosage: 40 MG, DAILY
     Dates: start: 20110729

REACTIONS (1)
  - DYSPNOEA [None]
